FAERS Safety Report 8937105 (Version 1)
Quarter: 2012Q4

REPORT INFORMATION
  Report Type: Spontaneous
  Country: US (occurrence: None)
  Receive Date: 20121128
  Receipt Date: 20121128
  Transmission Date: 20130627
  Serious: Yes (Life-Threatening)
  Sender: FDA-Public Use
  Company Number: None

PATIENT
  Age: 67 Year
  Sex: Female

DRUGS (2)
  1. HUMALOG INSULIN [Suspect]
     Indication: DIABETES
  2. LANTUS [Suspect]
     Indication: DIABETES
     Dosage: 25 units daily sq
     Route: 058

REACTIONS (4)
  - Dizziness [None]
  - Nausea [None]
  - Blood glucose increased [None]
  - Blood glucose decreased [None]
